FAERS Safety Report 7551731-6 (Version None)
Quarter: 2011Q2

REPORT INFORMATION
  Report Type: 
  Country: None (occurrence: None)
  Receive Date: 20110616
  Receipt Date: 20110527
  Transmission Date: 20111010
  Serious: Yes (Hospitalization)
  Sender: FDA-Public Use
  Company Number: A0866146A

PATIENT
  Age: 68 Year
  Sex: Female
  Weight: 87.7 kg

DRUGS (1)
  1. AVANDIA [Suspect]

REACTIONS (5)
  - CARDIAC FAILURE CONGESTIVE [None]
  - FEMUR FRACTURE [None]
  - SILENT MYOCARDIAL INFARCTION [None]
  - MENTAL DISORDER [None]
  - RENAL FAILURE [None]
